FAERS Safety Report 20791973 (Version 1)
Quarter: 2022Q2

REPORT INFORMATION
  Report Type: Spontaneous
  Country: CA (occurrence: CA)
  Receive Date: 20220505
  Receipt Date: 20220505
  Transmission Date: 20220721
  Serious: Yes (Hospitalization, Other)
  Sender: FDA-Public Use
  Company Number: CA-009507513-2204CAN009575

PATIENT
  Age: 63 Year
  Sex: Male

DRUGS (3)
  1. TEMODAL [Suspect]
     Active Substance: TEMOZOLOMIDE
     Indication: Glioblastoma
     Dosage: DOSAGE FORM: NOT SPECIFIED
     Route: 048
  2. COVID-19 VACCINE [Concomitant]
  3. SEPTRA [Concomitant]
     Active Substance: SULFAMETHOXAZOLE\TRIMETHOPRIM
     Route: 048

REACTIONS (3)
  - Altered state of consciousness [Unknown]
  - Eastern Cooperative Oncology Group performance status worsened [Unknown]
  - Thrombocytopenia [Unknown]
